FAERS Safety Report 5016132-3 (Version None)
Quarter: 2006Q2

REPORT INFORMATION
  Report Type: 
  Country: None (occurrence: None)
  Receive Date: 20060414
  Receipt Date: 20060314
  Transmission Date: 20061013
  Serious: No
  Sender: FDA-Public Use
  Company Number: 2006SP001232

PATIENT
  Age: 69 Year
  Sex: Male
  Weight: 86.1834 kg

DRUGS (4)
  1. LUNESTA [Suspect]
     Indication: INSOMNIA
     Dosage: 2 MG;HS;ORAL
     Route: 048
     Dates: start: 20060214, end: 20060312
  2. AMLODIPINE [Concomitant]
  3. NEXIUM [Concomitant]
  4. AMBIEN [Concomitant]

REACTIONS (1)
  - INCREASED UPPER AIRWAY SECRETION [None]
